FAERS Safety Report 15962019 (Version 1)
Quarter: 2019Q1

REPORT INFORMATION
  Report Type: Other
  Country: CN (occurrence: CN)
  Receive Date: 20190214
  Receipt Date: 20190214
  Transmission Date: 20190417
  Serious: Yes (Hospitalization)
  Sender: FDA-Public Use
  Company Number: CN-LEADING PHARMA, LLC-2062662

PATIENT
  Age: 33 Year
  Sex: Female

DRUGS (1)
  1. LORAZEPAM. [Suspect]
     Active Substance: LORAZEPAM

REACTIONS (8)
  - Vomiting [Recovered/Resolved]
  - Sinus tachycardia [Recovered/Resolved]
  - Electrocardiogram QRS complex prolonged [Unknown]
  - Abdominal pain upper [Recovered/Resolved]
  - Leukocytosis [Recovered/Resolved]
  - Metal poisoning [Recovering/Resolving]
  - Somnolence [Recovered/Resolved]
  - Hypokalaemia [Recovering/Resolving]
